FAERS Safety Report 25023933 (Version 1)
Quarter: 2025Q1

REPORT INFORMATION
  Report Type: Spontaneous
  Country: US (occurrence: None)
  Receive Date: 20250228
  Receipt Date: 20250228
  Transmission Date: 20250408
  Serious: Yes (Hospitalization)
  Sender: FDA-CTU
  Company Number: None

PATIENT
  Age: 73 Year
  Sex: Male
  Weight: 86 kg

DRUGS (1)
  1. LISINOPRIL [Suspect]
     Active Substance: LISINOPRIL
     Indication: Hypertension
     Dosage: FREQUENCY : DAILY;?
     Route: 048
     Dates: start: 20150205, end: 20240905

REACTIONS (5)
  - Dizziness [None]
  - Hypotension [None]
  - Acute kidney injury [None]
  - Alcohol use [None]
  - Dehydration [None]

NARRATIVE: CASE EVENT DATE: 20240905
